FAERS Safety Report 7064370-0 (Version None)
Quarter: 2010Q4

REPORT INFORMATION
  Report Type: 
  Country: None (occurrence: None)
  Receive Date: 20101027
  Receipt Date: 20101021
  Transmission Date: 20110411
  Serious: Yes (Other)
  Sender: FDA-Public Use
  Company Number: CA-BRISTOL-MYERS SQUIBB COMPANY-14006688

PATIENT
  Age: 57 Year
  Sex: Female

DRUGS (4)
  1. ORENCIA [Suspect]
     Indication: RHEUMATOID ARTHRITIS
     Dosage: 6,21NV,12DC07,7JAN,6FB08,5MR,7AP,5MY,3JUN,28JL,25AG;14OT9;4MR,INF:6JUL10-500MG/4WK.21OC10INF-35
     Route: 042
     Dates: start: 20071106
  2. SINGULAIR [Concomitant]
     Indication: ASTHMA
  3. METHOTREXATE [Concomitant]
  4. ALTACE [Concomitant]

REACTIONS (7)
  - ABSCESS JAW [None]
  - HEADACHE [None]
  - HYPERTENSIVE CRISIS [None]
  - MIGRAINE [None]
  - NASOPHARYNGITIS [None]
  - RHEUMATOID ARTHRITIS [None]
  - SLEEP APNOEA SYNDROME [None]
